FAERS Safety Report 8855554 (Version 1)
Quarter: 2012Q4

REPORT INFORMATION
  Report Type: 
  Country: US (occurrence: US)
  Receive Date: 20121023
  Receipt Date: 20121023
  Transmission Date: 20130627
  Serious: No
  Sender: FDA-Public Use
  Company Number: US-AMGEN-USASP2012059850

PATIENT
  Sex: Male
  Weight: 95.24 kg

DRUGS (7)
  1. ENBREL [Suspect]
     Indication: PRODUCT USED FOR UNKNOWN INDICATION
     Dosage: 50 mg, qwk
     Route: 058
  2. METHOTREXATE [Concomitant]
     Dosage: 2.5 mg, UNK
  3. PREDNISONE [Concomitant]
     Dosage: 5 mg, UNK
  4. FOLIC ACID [Concomitant]
     Dosage: 20 mg, UNK
  5. TYLENOL PM EXTRA STRENGTH [Concomitant]
     Dosage: UNK
  6. MAGNESIUM [Concomitant]
     Dosage: 300 mg, UNK
  7. PLAQUENIL                          /00072602/ [Concomitant]
     Dosage: 200 mg, UNK

REACTIONS (2)
  - Musculoskeletal pain [Unknown]
  - Arthralgia [Unknown]
